FAERS Safety Report 17849837 (Version 2)
Quarter: 2020Q2

REPORT INFORMATION
  Report Type: Report from Study
  Country: US (occurrence: US)
  Receive Date: 20200602
  Receipt Date: 20200604
  Transmission Date: 20200714
  Serious: Yes (Other)
  Sender: FDA-Public Use
  Company Number: US-ROCHE-1981383

PATIENT
  Age: 65 Year
  Sex: Female
  Weight: 57.2 kg

DRUGS (9)
  1. RITUXAN [Suspect]
     Active Substance: RITUXIMAB
     Indication: MULTIPLE SCLEROSIS
     Dosage: 2 BAGS 2 WEEKS APART EVERY 6 MONTHS; ONGOING: NO?DATE OF TREATMENT:15/OCT/2018, 14/MAY/2019 AND 14/N
     Route: 042
     Dates: start: 2013, end: 2018
  2. OCREVUS [Suspect]
     Active Substance: OCRELIZUMAB
     Indication: IMMUNE THROMBOCYTOPENIA
  3. RITUXAN [Suspect]
     Active Substance: RITUXIMAB
     Indication: IMMUNE THROMBOCYTOPENIA
  4. OCREVUS [Suspect]
     Active Substance: OCRELIZUMAB
     Indication: PRIMARY PROGRESSIVE MULTIPLE SCLEROSIS
     Dosage: ONGOING : YES
     Route: 042
     Dates: start: 201811
  5. OXYBUTYNIN. [Concomitant]
     Active Substance: OXYBUTYNIN CHLORIDE
     Dosage: INDICATION: BLADDER ISSUES
     Route: 048
  6. RITUXAN [Suspect]
     Active Substance: RITUXIMAB
     Indication: PRIMARY PROGRESSIVE MULTIPLE SCLEROSIS
  7. OCREVUS [Suspect]
     Active Substance: OCRELIZUMAB
     Indication: MULTIPLE SCLEROSIS
     Dosage: ONGOING : YES
     Route: 042
     Dates: start: 2018
  8. BACLOFEN. [Concomitant]
     Active Substance: BACLOFEN
     Route: 048
     Dates: start: 20200514
  9. CETIRIZINE [Concomitant]
     Active Substance: CETIRIZINE HYDROCHLORIDE
     Indication: HYPERSENSITIVITY
     Dosage: PILL
     Route: 048
     Dates: start: 2016

REACTIONS (16)
  - Blood sodium increased [Not Recovered/Not Resolved]
  - Neck pain [Recovering/Resolving]
  - Vitamin D decreased [Unknown]
  - Lymphopenia [Not Recovered/Not Resolved]
  - Off label use [Unknown]
  - Multiple sclerosis relapse [Recovered/Resolved]
  - Arthropathy [Recovered/Resolved]
  - Bladder disorder [Not Recovered/Not Resolved]
  - Erythema [Not Recovered/Not Resolved]
  - White blood cell count decreased [Not Recovered/Not Resolved]
  - Back pain [Unknown]
  - Headache [Recovered/Resolved]
  - Pruritus [Unknown]
  - Intentional product use issue [Unknown]
  - Full blood count decreased [Unknown]
  - Pain [Not Recovered/Not Resolved]

NARRATIVE: CASE EVENT DATE: 2013
